FAERS Safety Report 6784942-8 (Version None)
Quarter: 2010Q2

REPORT INFORMATION
  Report Type: 
  Country: None (occurrence: None)
  Receive Date: 20100622
  Receipt Date: 20100615
  Transmission Date: 20101027
  Serious: Yes (Other)
  Sender: FDA-Public Use
  Company Number: BE-ABBOTT-10P-013-0647988-00

PATIENT
  Sex: Female
  Weight: 80 kg

DRUGS (3)
  1. HUMIRA [Suspect]
     Indication: PSORIASIS
     Dates: start: 20100412, end: 20100517
  2. HUMIRA [Suspect]
     Indication: PSORIATIC ARTHROPATHY
  3. BISOPROLOL [Concomitant]
     Indication: HYPERTENSION

REACTIONS (2)
  - HYPERTENSIVE CRISIS [None]
  - VERTIGO [None]
